FAERS Safety Report 7334919-9 (Version None)
Quarter: 2011Q1

REPORT INFORMATION
  Report Type: 
  Country: None (occurrence: None)
  Receive Date: 20110307
  Receipt Date: 20110228
  Transmission Date: 20110831
  Serious: Yes (Hospitalization)
  Sender: FDA-Public Use
  Company Number: CA-ROCHE-745730

PATIENT
  Sex: Female
  Weight: 110.7 kg

DRUGS (15)
  1. RAMIPRIL [Concomitant]
     Indication: BLOOD PRESSURE
  2. VITAMIN B-12 [Concomitant]
  3. FOLIC ACID [Concomitant]
  4. AGGRENOX [Concomitant]
     Route: 048
  5. WARFARIN [Concomitant]
  6. TOCILIZUMAB [Suspect]
     Route: 042
     Dates: start: 20101208
  7. PREDNISONE [Concomitant]
  8. METHOTREXATE [Concomitant]
     Route: 058
  9. TOCILIZUMAB [Suspect]
     Indication: RHEUMATOID ARTHRITIS
     Dosage: FORM: INFUSION
     Route: 042
     Dates: start: 20100809
  10. VITAMINE D [Concomitant]
  11. SYNTHROID [Concomitant]
  12. FOSAMAX [Concomitant]
  13. VERAPAMIL [Concomitant]
  14. CALCIUM [Concomitant]
     Route: 048
  15. IRON [Concomitant]

REACTIONS (13)
  - MIDDLE EAR EFFUSION [None]
  - DYSPHONIA [None]
  - JOINT SWELLING [None]
  - NASAL CONGESTION [None]
  - JOINT STIFFNESS [None]
  - ORAL HERPES [None]
  - COUGH [None]
  - ARTHRALGIA [None]
  - NASOPHARYNGITIS [None]
  - DYSPNOEA [None]
  - SCLERAL DISCOLOURATION [None]
  - ATRIAL FIBRILLATION [None]
  - BLOOD CHOLESTEROL INCREASED [None]
